FAERS Safety Report 5841798-5 (Version None)
Quarter: 2008Q3

REPORT INFORMATION
  Report Type: 
  Country: None (occurrence: None)
  Receive Date: 20080812
  Receipt Date: 20080805
  Transmission Date: 20090109
  Serious: Yes (Life-Threatening)
  Sender: FDA-Public Use
  Company Number: A0741137A

PATIENT
  Age: 63 Year
  Sex: Female

DRUGS (9)
  1. REQUIP [Suspect]
     Indication: RESTLESS LEGS SYNDROME
     Dosage: 1MG PER DAY
     Route: 048
  2. IBUPROFEN [Concomitant]
  3. TRAZODONE HCL [Concomitant]
  4. OXYCODONE HCL [Concomitant]
  5. BENICAR [Concomitant]
  6. HYDROXYZINE [Concomitant]
  7. CLONAZEPAM [Concomitant]
  8. BUPROPION HCL [Concomitant]
  9. CARBATROL [Concomitant]

REACTIONS (1)
  - IMPAIRED DRIVING ABILITY [None]
